FAERS Safety Report 12591740 (Version 1)
Quarter: 2016Q3

REPORT INFORMATION
  Report Type: Spontaneous
  Country: US (occurrence: None)
  Receive Date: 20160725
  Receipt Date: 20160725
  Transmission Date: 20161109
  Serious: No
  Sender: FDA-Public Use
  Company Number: None

PATIENT
  Age: 64 Year
  Sex: Female
  Weight: 58.51 kg

DRUGS (11)
  1. METHYLPREDNISOLONE ACETATE. [Suspect]
     Active Substance: METHYLPREDNISOLONE ACETATE
     Indication: MUSCULOSKELETAL PAIN
     Dates: start: 20160721, end: 20160721
  2. ALEVE [Concomitant]
     Active Substance: NAPROXEN SODIUM
  3. ACYCLOVIR. [Concomitant]
     Active Substance: ACYCLOVIR
  4. CALCIUM [Concomitant]
     Active Substance: CALCIUM
  5. METHYLPREDNISOLONE ACETATE. [Suspect]
     Active Substance: METHYLPREDNISOLONE ACETATE
     Indication: TENDONITIS
     Dates: start: 20160721, end: 20160721
  6. LIDOCAINE HCL [Suspect]
     Active Substance: LIDOCAINE HYDROCHLORIDE
  7. PREMARIN [Concomitant]
     Active Substance: ESTROGENS, CONJUGATED
  8. GLUCOSAMINE CHONDROITIN [Concomitant]
     Active Substance: CHONDROITIN SULFATE (BOVINE)\GLUCOSAMINE HYDROCHLORIDE
  9. MILK THISTLE [Concomitant]
     Active Substance: MILK THISTLE
  10. B VITAMIIN [Concomitant]
  11. OVER-50 DAILY VITAMIN [Concomitant]

REACTIONS (7)
  - Aphasia [None]
  - Dizziness [None]
  - Nausea [None]
  - Muscular weakness [None]
  - Grip strength decreased [None]
  - Thinking abnormal [None]
  - Feeling drunk [None]

NARRATIVE: CASE EVENT DATE: 20160721
